FAERS Safety Report 22381218 (Version 1)
Quarter: 2023Q2

REPORT INFORMATION
  Report Type: Report from Study
  Country: GB (occurrence: GB)
  Receive Date: 20230530
  Receipt Date: 20230530
  Transmission Date: 20230722
  Serious: Yes (Other)
  Sender: FDA-Public Use
  Company Number: GB-BRISTOL-MYERS SQUIBB COMPANY-2023-067883

PATIENT

DRUGS (13)
  1. DEXAMETHASONE [Suspect]
     Active Substance: DEXAMETHASONE
     Indication: Plasma cell myeloma
     Dosage: 20 MG, 1 DOSE WEEKLY
     Route: 050
     Dates: start: 20201112, end: 20201130
  2. DEXAMETHASONE [Suspect]
     Active Substance: DEXAMETHASONE
     Dosage: 10 MG, 1 DOSE WEEKLY
     Route: 050
     Dates: start: 20201201, end: 20201223
  3. DEXAMETHASONE [Suspect]
     Active Substance: DEXAMETHASONE
     Dosage: 20 MG, 1 DOSE WEEKLY
     Route: 050
     Dates: start: 20201026, end: 20201106
  4. DEXAMETHASONE [Suspect]
     Active Substance: DEXAMETHASONE
     Dosage: 10 MG, 1 DOSE WEEKLY
     Route: 050
     Dates: start: 20201224, end: 20210126
  5. REVLIMID [Suspect]
     Active Substance: LENALIDOMIDE
     Indication: Plasma cell myeloma
     Dosage: UNK
     Route: 065
     Dates: start: 20201107, end: 20201110
  6. REVLIMID [Suspect]
     Active Substance: LENALIDOMIDE
     Dosage: 25 MG, QD
     Route: 050
     Dates: start: 20201111, end: 20201120
  7. REVLIMID [Suspect]
     Active Substance: LENALIDOMIDE
     Dosage: DELAY OF ONE DAY TILL CLINIC VISIT
     Route: 065
     Dates: start: 20210119, end: 20210125
  8. REVLIMID [Suspect]
     Active Substance: LENALIDOMIDE
     Dosage: DELAY OF ONE DAY TILL CLINIC VISIT
     Route: 050
     Dates: start: 20201201, end: 20201221
  9. REVLIMID [Suspect]
     Active Substance: LENALIDOMIDE
     Dosage: DELAY OF ONE DAY TILL CLINIC VISIT
     Route: 065
     Dates: start: 20201222, end: 20201228
  10. REVLIMID [Suspect]
     Active Substance: LENALIDOMIDE
     Dosage: DELAY OF ONE DAY TILL CLINIC VISIT
     Route: 065
     Dates: start: 20201128, end: 20201130
  11. REVLIMID [Suspect]
     Active Substance: LENALIDOMIDE
     Dosage: UNK
     Route: 065
     Dates: start: 20201121, end: 20201127
  12. REVLIMID [Suspect]
     Active Substance: LENALIDOMIDE
     Dosage: 25 MG
     Route: 050
     Dates: start: 20201027, end: 20201106
  13. REVLIMID [Suspect]
     Active Substance: LENALIDOMIDE
     Dosage: DELAY OF ONE DAY TILL CLINIC VISIT
     Route: 050
     Dates: start: 20201229, end: 20210118

REACTIONS (1)
  - Retinal artery occlusion [Not Recovered/Not Resolved]

NARRATIVE: CASE EVENT DATE: 20230131
